FAERS Safety Report 10598175 (Version 1)
Quarter: 2014Q4

REPORT INFORMATION
  Report Type: Spontaneous
  Country: US (occurrence: None)
  Receive Date: 20141119
  Receipt Date: 20141119
  Transmission Date: 20150529
  Serious: Yes (Hospitalization)
  Sender: FDA-Public Use
  Company Number: IPC201411-000602

PATIENT
  Age: 17 Year
  Sex: Female

DRUGS (8)
  1. DOXYCYCLINE. [Suspect]
     Active Substance: DOXYCYCLINE
     Indication: NASAL ABSCESS
  2. INSULIN [Suspect]
     Active Substance: INSULIN NOS
  3. METFORMIN HYDROCHLORIDE (METFORMIN HYDROCHLORIDE) (METFORMIN HYDROCHLORIDE) [Suspect]
     Active Substance: METFORMIN HYDROCHLORIDE
  4. RISPERDAL [Suspect]
     Active Substance: RISPERIDONE
  5. LISINOPRIL (LISINOPRIL) (LISINOPRIL) [Suspect]
     Active Substance: LISINOPRIL
  6. KEFLEX [Suspect]
     Active Substance: CEPHALEXIN
  7. BACTRIM [Suspect]
     Active Substance: SULFAMETHOXAZOLE\TRIMETHOPRIM
  8. ROCEPHIN [Suspect]
     Active Substance: CEFTRIAXONE SODIUM

REACTIONS (6)
  - Nasal abscess [None]
  - Infection [None]
  - Cellulitis [None]
  - Drug hypersensitivity [None]
  - Hereditary angioedema [None]
  - Complement factor C4 increased [None]
